FAERS Safety Report 11230375 (Version 1)
Quarter: 2015Q2

REPORT INFORMATION
  Report Type: Spontaneous
  Country: US (occurrence: None)
  Receive Date: 20150630
  Receipt Date: 20150630
  Transmission Date: 20150821
  Serious: Yes (Hospitalization)
  Sender: FDA-Public Use
  Company Number: None

PATIENT
  Age: 12 Year
  Sex: Female
  Weight: 47.63 kg

DRUGS (1)
  1. FLUOXETINE [Suspect]
     Active Substance: FLUOXETINE\FLUOXETINE HYDROCHLORIDE
     Indication: ANXIETY
     Dosage: 1.25ML/DAY, ONCE DAILY, TAKEN BY MOUTH
     Route: 048
     Dates: start: 20150502, end: 20150504

REACTIONS (12)
  - Restlessness [None]
  - Screaming [None]
  - Self injurious behaviour [None]
  - Suicidal ideation [None]
  - Anger [None]
  - Insomnia [None]
  - Vomiting [None]
  - Agitation [None]
  - Educational problem [None]
  - Dizziness [None]
  - Vertigo [None]
  - Confusional state [None]

NARRATIVE: CASE EVENT DATE: 20150505
